FAERS Safety Report 20452341 (Version 1)
Quarter: 2022Q1

REPORT INFORMATION
  Report Type: Other
  Country: US (occurrence: None)
  Receive Date: 20220210
  Receipt Date: 20220210
  Transmission Date: 20220423
  Serious: Yes (Other)
  Sender: FDA-Public Use
  Company Number: US-ROCHE-3009919

PATIENT
  Sex: Female

DRUGS (2)
  1. OCREVUS [Suspect]
     Active Substance: OCRELIZUMAB
     Indication: Relapsing multiple sclerosis
     Dosage: INFUSE 300 MG ON DAY 1 AND DAY 15, INFUSE 600 MG EVERY 6 MONTHS
     Route: 042
  2. RITUXIMAB [Suspect]
     Active Substance: RITUXIMAB
     Indication: Multiple sclerosis
     Route: 041

REACTIONS (3)
  - Pneumonia [Recovered/Resolved]
  - Off label use [Unknown]
  - Hypogammaglobulinaemia [Unknown]
